FAERS Safety Report 7030369-3 (Version None)
Quarter: 2010Q4

REPORT INFORMATION
  Report Type: 
  Country: None (occurrence: None)
  Receive Date: 20101001
  Receipt Date: 20100927
  Transmission Date: 20110411
  Serious: Yes (Life-Threatening, Hospitalization, Other)
  Sender: FDA-Public Use
  Company Number: 2010SP023349

PATIENT
  Age: 63 Year
  Sex: Female
  Weight: 57 kg

DRUGS (13)
  1. TEMOZOLOMIDE [Suspect]
     Indication: GLIOBLASTOMA MULTIFORME
     Dosage: PO
     Route: 048
     Dates: start: 20100302, end: 20100328
  2. ABT-888 [Suspect]
     Indication: GLIOBLASTOMA MULTIFORME
     Dosage: 10 MG; QD; PO, 10 MG; BID; PO
     Route: 048
     Dates: start: 20100301, end: 20100301
  3. ABT-888 [Suspect]
     Indication: GLIOBLASTOMA MULTIFORME
     Dosage: 10 MG; QD; PO, 10 MG; BID; PO
     Route: 048
     Dates: start: 20100302, end: 20100328
  4. DUCOSATE SODIUM [Concomitant]
  5. OXYCODONE HCL [Concomitant]
  6. DEXAMETHASONE [Concomitant]
  7. LANSOPRAZOLE [Concomitant]
  8. ZOLPIDEM TARTRATE [Concomitant]
  9. ACETYLSALICYLIC ACID SRT [Concomitant]
  10. DEXAMETHASONE [Concomitant]
  11. DOCUSATE SODIUM [Concomitant]
  12. MACROGEL [Concomitant]
  13. BISACODYL [Concomitant]

REACTIONS (7)
  - ARTHRALGIA [None]
  - BONE PAIN [None]
  - FATIGUE [None]
  - FEBRILE NEUTROPENIA [None]
  - HAEMOGLOBIN DECREASED [None]
  - THROMBOCYTOPENIA [None]
  - WHITE BLOOD CELL COUNT DECREASED [None]
